FAERS Safety Report 21393538 (Version 1)
Quarter: 2022Q3

REPORT INFORMATION
  Report Type: Spontaneous
  Country: US (occurrence: None)
  Receive Date: 20220928
  Receipt Date: 20220928
  Transmission Date: 20221026
  Serious: Yes (Death)
  Sender: FDA-Public Use
  Company Number: None

PATIENT
  Age: 75 Year
  Sex: Female

DRUGS (17)
  1. PROLIA [Suspect]
     Active Substance: DENOSUMAB
     Indication: Osteoarthritis
     Dosage: INJECT 60 MG UNDER THE SKIN EVERY 6 MONTHS
     Route: 058
     Dates: start: 20170620, end: 202209
  2. AMILOR/HCTZ TAB [Concomitant]
  3. VITAMIN B12 [Concomitant]
     Active Substance: CYANOCOBALAMIN
  4. BIOTIN [Concomitant]
     Active Substance: BIOTIN
  5. CALCIUM CITR [Concomitant]
  6. MELOXICAM [Concomitant]
     Active Substance: MELOXICAM
  7. MINERALS\VITAMINS [Concomitant]
     Active Substance: MINERALS\VITAMINS
  8. RANITIDINE [Concomitant]
     Active Substance: RANITIDINE
  9. REFRESH GEL OPTIVE [Concomitant]
  10. RESTASIS EMU [Concomitant]
  11. SIMVASTATIN [Concomitant]
     Active Substance: SIMVASTATIN
  12. STOOL SOFTNR [Concomitant]
  13. VESICARE [Concomitant]
     Active Substance: SOLIFENACIN SUCCINATE
  14. VIODIN ES [Concomitant]
  15. VITAMINS [Concomitant]
     Active Substance: VITAMINS
  16. ZAFIRLUKAST [Concomitant]
     Active Substance: ZAFIRLUKAST
  17. ZINC [Concomitant]
     Active Substance: ZINC

REACTIONS (1)
  - Death [None]

NARRATIVE: CASE EVENT DATE: 20220927
